FAERS Safety Report 24427946 (Version 2)
Quarter: 2024Q4

REPORT INFORMATION
  Report Type: Report from Study
  Country: US (occurrence: US)
  Receive Date: 20241011
  Receipt Date: 20241024
  Transmission Date: 20250114
  Serious: Yes (Hospitalization)
  Sender: ALNYLAM PHARMACEUTICALS
  Company Number: US-ALNYLAM PHARMACEUTICALS, INC.-ALN-2024-005597

PATIENT

DRUGS (2)
  1. GIVLAARI [Suspect]
     Active Substance: GIVOSIRAN SODIUM
     Indication: Product used for unknown indication
     Dosage: 102.28 MILLIGRAM, MONTHLY (189 MILLIGRAM PER MILLILITRE)
     Route: 058
     Dates: start: 20210331, end: 20210331
  2. GIVLAARI [Suspect]
     Active Substance: GIVOSIRAN SODIUM
     Dosage: 102.28 MILLIGRAM, MONTHLY (189 MILLIGRAM PER MILLILITRE)
     Route: 058
     Dates: start: 20241022, end: 20241022

REACTIONS (2)
  - Hospitalisation [Unknown]
  - Weight decreased [Unknown]
